FAERS Safety Report 7931796 (Version 4)
Quarter: 2013Q3

REPORT INFORMATION
  Report Type: Report from Study
  Country: FR (occurrence: FR)
  Receive Date: 20110505
  Receipt Date: 20130801
  Transmission Date: 20140515
  Serious: Yes (Death, Other)
  Sender: FDA-Public Use
  Company Number: FR-ROCHE-774595

PATIENT
  Age: 60 Year
  Sex: Male
  Weight: 60 kg

DRUGS (6)
  1. BEVACIZUMAB [Suspect]
     Indication: LUNG NEOPLASM MALIGNANT
     Route: 042
     Dates: start: 20101221, end: 20110208
  2. PEMETREXED DISODIUM [Suspect]
     Indication: LUNG NEOPLASM MALIGNANT
     Dosage: 500 ,1 /3 XM
     Route: 042
     Dates: start: 20110208, end: 20110208
  3. CARBOPLATIN [Suspect]
     Indication: LUNG NEOPLASM MALIGNANT
     Dosage: 1/3XM
     Route: 042
     Dates: start: 20110208, end: 20110208
  4. CISPLATIN [Suspect]
     Indication: LUNG NEOPLASM MALIGNANT
     Route: 065
  5. AUGMENTIN [Concomitant]
     Route: 065
     Dates: start: 20110216, end: 20110224
  6. NEULASTA [Concomitant]
     Route: 065
     Dates: start: 20110216

REACTIONS (2)
  - Sudden cardiac death [Fatal]
  - Febrile bone marrow aplasia [Recovered/Resolved]
